FAERS Safety Report 9208271 (Version 2)
Quarter: 2013Q2

REPORT INFORMATION
  Report Type: Spontaneous
  Country: EG (occurrence: EG)
  Receive Date: 20130403
  Receipt Date: 20130513
  Transmission Date: 20140414
  Serious: Yes (Life-Threatening, Other)
  Sender: FDA-Public Use
  Company Number: EG-PFIZER INC-2013104394

PATIENT
  Age: 35 Year
  Sex: Female

DRUGS (5)
  1. EFEXOR XR [Suspect]
     Indication: MAJOR DEPRESSION
     Dosage: 75 MG, 1X/DAY
     Dates: start: 20130330, end: 20130401
  2. EFEXOR XR [Suspect]
     Indication: GENERALISED ANXIETY DISORDER
  3. EFEXOR XR [Suspect]
     Indication: SOCIAL PHOBIA
  4. EFEXOR XR [Suspect]
     Indication: PANIC DISORDER
  5. XANAX - SLOW RELEASE [Concomitant]
     Indication: ANXIOLYTIC THERAPY
     Dosage: UNK

REACTIONS (4)
  - Suicidal ideation [Recovered/Resolved]
  - Hypersensitivity [Unknown]
  - Akathisia [Recovered/Resolved]
  - Restlessness [Recovered/Resolved]
